FAERS Safety Report 5243903-0 (Version None)
Quarter: 2007Q1

REPORT INFORMATION
  Report Type: 
  Country: None (occurrence: None)
  Receive Date: 20070222
  Receipt Date: 20070212
  Transmission Date: 20070707
  Serious: Yes (Other)
  Sender: FDA-Public Use
  Company Number: PHNR2006AU01592

PATIENT
  Sex: Male

DRUGS (5)
  1. CLOZARIL [Suspect]
     Indication: SCHIZOPHRENIA
     Dosage: 0 - 400 MG DAILY
     Route: 048
     Dates: start: 20011015, end: 20020213
  2. CLOZARIL [Suspect]
     Dosage: 0 - 800 MG DAILY
     Dates: start: 20020220
  3. SEROQUEL [Concomitant]
     Dosage: 200 MG, QD
     Dates: start: 20000101
  4. LITHIUM CARBONATE [Concomitant]
     Dosage: 1000 MG, QD
     Dates: start: 20000101
  5. DIAZEPAM [Concomitant]
     Dosage: 5-10MG
     Dates: start: 20000101

REACTIONS (4)
  - BLOOD GLUCOSE INCREASED [None]
  - HEPATIC STEATOSIS [None]
  - LIVER FUNCTION TEST ABNORMAL [None]
  - ULTRASOUND LIVER ABNORMAL [None]
